FAERS Safety Report 10623238 (Version 1)
Quarter: 2014Q4

REPORT INFORMATION
  Report Type: Spontaneous
  Country: GB (occurrence: GB)
  Receive Date: 20141203
  Receipt Date: 20141203
  Transmission Date: 20150529
  Serious: Yes (Hospitalization, Other)
  Sender: FDA-Public Use
  Company Number: GB-MYLANLABS-2014M1012406

PATIENT

DRUGS (2)
  1. CAPECITABINE. [Suspect]
     Active Substance: CAPECITABINE
     Dosage: 1000 MG/M2/TWICE DAILY, 14-DAY LONG COURSE
     Route: 048
  2. OXALIPLATIN. [Concomitant]
     Active Substance: OXALIPLATIN
     Indication: COLON CANCER
     Dosage: 130 MG/M2
     Route: 050

REACTIONS (4)
  - Acute coronary syndrome [Recovering/Resolving]
  - Acute myocardial infarction [Recovered/Resolved]
  - Coronary artery thrombosis [Recovering/Resolving]
  - Arteriospasm coronary [Recovered/Resolved]
